FAERS Safety Report 7698858-6 (Version None)
Quarter: 2011Q3

REPORT INFORMATION
  Report Type: 
  Country: None (occurrence: None)
  Receive Date: 20110819
  Receipt Date: 20110803
  Transmission Date: 20111222
  Serious: Yes (Other)
  Sender: FDA-Public Use
  Company Number: US-BAYER-2011-068890

PATIENT
  Age: 70 Year
  Sex: Male

DRUGS (4)
  1. COUMADIN [Concomitant]
     Dosage: 6 MG/DAY ALTERNATING WITH 5 MG/DAY
     Route: 048
  2. NEXAVAR [Suspect]
     Indication: RENAL CELL CARCINOMA
     Dosage: 400 MG, BID
     Route: 048
     Dates: start: 20110802
  3. METOPROLOL SUCCINATE [Concomitant]
     Indication: BLOOD PRESSURE INCREASED
     Dosage: 25 MG DAILY + EXTRA TABLET DAILY
     Route: 048
     Dates: start: 20110501, end: 20110501
  4. METOPROLOL SUCCINATE [Concomitant]
     Dosage: 25 MG DAILY
     Route: 048

REACTIONS (7)
  - ATRIAL FIBRILLATION [None]
  - BLOOD PRESSURE INCREASED [None]
  - DRY MOUTH [None]
  - OROPHARYNGEAL PAIN [None]
  - SENSORY DISTURBANCE [None]
  - HAEMOPTYSIS [None]
  - STOMATITIS [None]
